FAERS Safety Report 21218554 (Version 1)
Quarter: 2022Q3

REPORT INFORMATION
  Report Type: Spontaneous
  Country: AU (occurrence: AU)
  Receive Date: 20220816
  Receipt Date: 20220816
  Transmission Date: 20221027
  Serious: Yes (Other)
  Sender: FDA-Public Use
  Company Number: AU-AMGEN-AUSSP2022137046

PATIENT
  Age: 69 Year
  Sex: Male

DRUGS (9)
  1. FILGRASTIM [Suspect]
     Active Substance: FILGRASTIM
     Indication: Neutropenia
     Dosage: 300 MICROGRAM, QOD
     Route: 065
     Dates: start: 202003
  2. AMIKACIN [Concomitant]
     Active Substance: AMIKACIN
     Dosage: UNK
     Route: 065
  3. MEROPENEM [Concomitant]
     Active Substance: MEROPENEM
     Dosage: UNK
     Dates: start: 20200227
  4. DEXAMETHASONE [Concomitant]
     Active Substance: DEXAMETHASONE
     Dosage: UNK
     Dates: start: 20200227
  5. LENALIDOMIDE [Concomitant]
     Active Substance: LENALIDOMIDE
     Dosage: UNK
     Dates: start: 20200227
  6. LINEZOLID [Concomitant]
     Active Substance: LINEZOLID
     Dosage: UNK
     Dates: start: 20200227
  7. SULFAMETHOXAZOLE\TRIMETHOPRIM [Concomitant]
     Active Substance: SULFAMETHOXAZOLE\TRIMETHOPRIM
     Dosage: UNK
     Dates: start: 20200227
  8. MOXIFLOXACIN [Concomitant]
     Active Substance: MOXIFLOXACIN
     Dosage: UNK
     Dates: start: 20200313
  9. VALACYCLOVIR [Concomitant]
     Active Substance: VALACYCLOVIR HYDROCHLORIDE

REACTIONS (2)
  - Cerebral nocardiosis [Recovered/Resolved]
  - Staphylococcal infection [Unknown]

NARRATIVE: CASE EVENT DATE: 20200301
